FAERS Safety Report 6583277-6 (Version None)
Quarter: 2010Q1

REPORT INFORMATION
  Report Type: 
  Country: None (occurrence: None)
  Receive Date: 20100216
  Receipt Date: 20100209
  Transmission Date: 20100710
  Serious: Yes (Hospitalization)
  Sender: FDA-Public Use
  Company Number: B0629710A

PATIENT
  Sex: Female
  Weight: 60 kg

DRUGS (12)
  1. VALTREX [Suspect]
     Indication: HERPES ZOSTER
     Dosage: 1000MG PER DAY
     Route: 048
     Dates: start: 20091119
  2. DEPAS [Concomitant]
     Dosage: 1MG PER DAY
     Route: 048
  3. ALOSENN [Concomitant]
     Dosage: 1G PER DAY
     Route: 048
  4. UNKNOWN DRUG [Concomitant]
     Dosage: 10MG PER DAY
     Route: 048
  5. UNKNOWN DRUG [Concomitant]
     Route: 048
  6. ASPIRIN [Concomitant]
     Route: 048
  7. RENAGEL [Concomitant]
     Route: 048
  8. ELCITONIN [Concomitant]
     Route: 030
  9. UNKNOWN DRUG [Concomitant]
     Route: 042
  10. HYDREA [Concomitant]
     Route: 048
  11. VIDARABINE [Concomitant]
     Route: 031
  12. UNKNOWN DRUG [Concomitant]
     Route: 061

REACTIONS (3)
  - ALTERED STATE OF CONSCIOUSNESS [None]
  - DYSARTHRIA [None]
  - OVERDOSE [None]
